FAERS Safety Report 21375444 (Version 2)
Quarter: 2022Q3

REPORT INFORMATION
  Report Type: Spontaneous
  Country: IN (occurrence: IN)
  Receive Date: 20220926
  Receipt Date: 20220926
  Transmission Date: 20221026
  Serious: Yes (Death, Life-Threatening, Other)
  Sender: FDA-Public Use
  Company Number: IN-PFIZER INC-PV202200066346

PATIENT
  Age: 23 Year
  Sex: Female

DRUGS (6)
  1. TIGECYCLINE [Suspect]
     Active Substance: TIGECYCLINE
     Indication: Sepsis
     Dosage: UNK
  2. TIGECYCLINE [Suspect]
     Active Substance: TIGECYCLINE
     Indication: Pneumonia
  3. TIGECYCLINE [Suspect]
     Active Substance: TIGECYCLINE
     Indication: Bacterial infection
  4. COLISTIN [Suspect]
     Active Substance: COLISTIN
     Indication: Sepsis
     Dosage: UNK
  5. COLISTIN [Suspect]
     Active Substance: COLISTIN
     Indication: Pneumonia
  6. COLISTIN [Suspect]
     Active Substance: COLISTIN
     Indication: Bacterial infection

REACTIONS (1)
  - No adverse event [Fatal]
